FAERS Safety Report 6036505-X (Version None)
Quarter: 2009Q1

REPORT INFORMATION
  Report Type: 
  Country: None (occurrence: None)
  Receive Date: 20090114
  Receipt Date: 20090107
  Transmission Date: 20090719
  Serious: Yes (Other)
  Sender: FDA-Public Use
  Company Number: US-RANBAXY-2009US-20405

PATIENT

DRUGS (1)
  1. MINOCYCLINE HYDROCHLORIDE [Suspect]
     Indication: ACNE
     Dosage: 100 MG, BID
     Route: 048
     Dates: start: 20081115, end: 20081231

REACTIONS (1)
  - BLOOD CREATININE INCREASED [None]
